FAERS Safety Report 24996020 (Version 1)
Quarter: 2025Q1

REPORT INFORMATION
  Report Type: Spontaneous
  Country: US (occurrence: US)
  Receive Date: 20250221
  Receipt Date: 20250221
  Transmission Date: 20250409
  Serious: No
  Sender: CATALYST PHARMA
  Company Number: US-CATALYST PHARMACEUTICALS-US-CATA-24-01552

PATIENT
  Sex: Male
  Weight: 19.1 kg

DRUGS (2)
  1. AGAMREE [Suspect]
     Active Substance: VAMOROLONE
     Indication: Duchenne muscular dystrophy
     Dosage: 2.8 ML DAILY
     Route: 048
     Dates: start: 20240906
  2. CHILDREN^S MULTIVITAMIN [Concomitant]
     Indication: Product used for unknown indication
     Dosage: ONE TABLET DAILY
     Route: 065

REACTIONS (2)
  - Nausea [Not Recovered/Not Resolved]
  - Helminthic infection [Not Recovered/Not Resolved]

NARRATIVE: CASE EVENT DATE: 20240101
